FAERS Safety Report 9060972 (Version 1)
Quarter: 2013Q1

REPORT INFORMATION
  Report Type: Spontaneous
  Country: US (occurrence: US)
  Receive Date: 20130213
  Receipt Date: 20130213
  Transmission Date: 20140127
  Serious: Yes (Hospitalization, Other)
  Sender: FDA-Public Use
  Company Number: US-009507513-1302USA001740

PATIENT
  Age: 57 None
  Sex: Male

DRUGS (6)
  1. PEGINTRON [Suspect]
     Indication: HEPATITIS C
     Dosage: UNK
     Dates: start: 20120626, end: 20120801
  2. PEGINTRON [Suspect]
     Dosage: UNK
     Dates: start: 20130106
  3. PEGINTRON [Suspect]
     Dosage: UNK
     Dates: start: 20130113
  4. RIBAVIRIN [Suspect]
     Indication: HEPATITIS C
     Dosage: UNK
     Dates: start: 20120626, end: 20120801
  5. RIBAVIRIN [Suspect]
     Dosage: UNK
     Dates: start: 20130106
  6. RIBAVIRIN [Suspect]
     Dosage: UNK
     Route: 048
     Dates: start: 20130113

REACTIONS (9)
  - Oedema peripheral [Unknown]
  - Renal impairment [Unknown]
  - Hepatic function abnormal [Unknown]
  - Overdose [Unknown]
  - Chills [Unknown]
  - Dysgeusia [Unknown]
  - Nausea [Unknown]
  - Dizziness [Unknown]
  - Chills [Unknown]
